FAERS Safety Report 16074976 (Version 1)
Quarter: 2019Q1

REPORT INFORMATION
  Report Type: Spontaneous
  Country: US (occurrence: US)
  Receive Date: 20190315
  Receipt Date: 20190315
  Transmission Date: 20190418
  Serious: No
  Sender: FDA-Public Use
  Company Number: US-P+ L DEVELOPMENTS OF NEWYORK CORPORATION-2064037

PATIENT
  Age: 86 Year
  Sex: Female
  Weight: 130.45 kg

DRUGS (13)
  1. AMLODIPINE [Concomitant]
     Active Substance: AMLODIPINE BESYLATE
     Route: 065
  2. OXYBUTYNIN. [Concomitant]
     Active Substance: OXYBUTYNIN CHLORIDE
     Route: 065
  3. FLUOXETINE [Concomitant]
     Active Substance: FLUOXETINE HYDROCHLORIDE
     Route: 065
  4. DIVALPROEX SODIUM. [Concomitant]
     Active Substance: DIVALPROEX SODIUM
     Route: 065
  5. HYDROCODONE BITARTRATE AND ACETAMINOPHEN [Concomitant]
     Active Substance: ACETAMINOPHEN\HYDROCODONE BITARTRATE
     Route: 065
  6. OMEPRAZOLE. [Concomitant]
     Active Substance: OMEPRAZOLE
     Route: 065
  7. ATORVASTATIN CALCIUM. [Concomitant]
     Active Substance: ATORVASTATIN CALCIUM
     Route: 065
  8. DONEPEZIL. [Concomitant]
     Active Substance: DONEPEZIL
     Route: 065
  9. BUSPIRONE [Concomitant]
     Active Substance: BUSPIRONE HYDROCHLORIDE
     Route: 065
  10. LORATADINE. [Suspect]
     Active Substance: LORATADINE
     Indication: SINUSITIS
     Route: 065
  11. INCRUSE ELLIPTA [Concomitant]
     Active Substance: UMECLIDINIUM BROMIDE
     Route: 065
  12. METOPROLOL. [Concomitant]
     Active Substance: METOPROLOL
     Route: 065
  13. ADVAIR HFA [Concomitant]
     Active Substance: FLUTICASONE PROPIONATE\SALMETEROL XINAFOATE
     Route: 065

REACTIONS (2)
  - Accidental overdose [Unknown]
  - Somnolence [Unknown]

NARRATIVE: CASE EVENT DATE: 20190228
